FAERS Safety Report 7618835-0 (Version None)
Quarter: 2011Q3

REPORT INFORMATION
  Report Type: 
  Country: None (occurrence: None)
  Receive Date: 20110718
  Receipt Date: 20110714
  Transmission Date: 20111222
  Serious: Yes (Hospitalization)
  Sender: FDA-Public Use
  Company Number: JP-PFIZER INC-2009206863

PATIENT
  Age: 58 Year
  Sex: Male
  Weight: 70 kg

DRUGS (8)
  1. TRANEXAMIC ACID [Concomitant]
     Route: 042
  2. STRONG NEO-MINOPHAGEN C [Concomitant]
     Route: 042
  3. FAMOTIDINE [Concomitant]
     Indication: GASTRITIS ATROPHIC
  4. SUNITINIB MALATE [Suspect]
     Indication: HEPATIC NEOPLASM MALIGNANT
     Dosage: 37.5 MG, 1X/DAY
     Route: 048
     Dates: start: 20090416, end: 20090427
  5. FUROSEMIDE [Concomitant]
     Dosage: UNK
     Route: 048
  6. INSULIN ASPART [Concomitant]
     Indication: DIABETES MELLITUS
     Dosage: UNK
     Route: 058
  7. FAMOTIDINE [Concomitant]
     Indication: PORTAL HYPERTENSIVE GASTROPATHY
     Dosage: UNK
     Route: 048
  8. CALCIUM LACTATE [Concomitant]
     Dosage: UNK
     Route: 048

REACTIONS (1)
  - HEPATIC ENCEPHALOPATHY [None]
